FAERS Safety Report 4629475-X (Version None)
Quarter: 2005Q2

REPORT INFORMATION
  Report Type: 
  Country: None (occurrence: None)
  Receive Date: 20050405
  Receipt Date: 20050321
  Transmission Date: 20051028
  Serious: Yes (Hospitalization)
  Sender: FDA-Public Use
  Company Number: 2005GB00598

PATIENT
  Age: 75 Year
  Sex: Male

DRUGS (7)
  1. OMEPRAZOLE [Suspect]
     Indication: PROPHYLAXIS AGAINST GASTROINTESTINAL ULCER
     Dosage: 20 MG QD PO
     Route: 048
     Dates: start: 20050215, end: 20050308
  2. DICLOFENAC SODIUM [Suspect]
     Indication: RHEUMATOID ARTHRITIS
     Dosage: 75 MG BID PO
     Route: 048
     Dates: start: 20050215, end: 20050308
  3. ASPIRIN [Concomitant]
  4. LISINOPRIL [Concomitant]
  5. ATENOLOL [Concomitant]
  6. PRAVASTATIN [Concomitant]
  7. CELECOXIB [Concomitant]

REACTIONS (2)
  - ANGIONEUROTIC OEDEMA [None]
  - DYSPHONIA [None]
